FAERS Safety Report 4323118-0 (Version None)
Quarter: 2004Q1

REPORT INFORMATION
  Report Type: 
  Country: None (occurrence: None)
  Receive Date: 20040322
  Receipt Date: 20040315
  Transmission Date: 20041129
  Serious: Yes (Other)
  Sender: FDA-Public Use
  Company Number: 001#0#2004-00056

PATIENT
  Age: 79 Year
  Sex: Female

DRUGS (2)
  1. ISOSORBIDE DINITRATE [Suspect]
     Dosage: 1.1680 MG (60MG 28 IN 1 DAY(S) ORAL
     Route: 048
     Dates: start: 20030430, end: 20030430
  2. PAROXETINE HCL [Concomitant]

REACTIONS (4)
  - INTENTIONAL OVERDOSE [None]
  - LUNG DISORDER [None]
  - MULTIPLE DRUG OVERDOSE [None]
  - SUICIDE ATTEMPT [None]
